FAERS Safety Report 5136734-3 (Version None)
Quarter: 2006Q4

REPORT INFORMATION
  Report Type: 
  Country: None (occurrence: None)
  Receive Date: 20061023
  Receipt Date: 20061010
  Transmission Date: 20070319
  Serious: Yes (Hospitalization)
  Sender: FDA-Public Use
  Company Number: GXKR2006IN06389

PATIENT
  Age: 50 Year
  Sex: Male

DRUGS (12)
  1. FLUCLOXACILLIN [Suspect]
     Indication: PYREXIA
     Dosage: 2 G, QD, INTRAVENOUS; SEE IMAGE
     Route: 042
  2. ACETAMINOPHEN [Suspect]
     Indication: PAIN
     Dosage: 1 G, Q6H, ORAL
     Route: 048
  3. PHENYTOIN [Concomitant]
  4. PHENOBARBITAL TAB [Concomitant]
  5. CARBAMAZEPINE [Concomitant]
  6. CEFTRIAXONE [Concomitant]
  7. GENTAMICIN [Concomitant]
  8. STREPTOKINASE [Concomitant]
  9. TIMENTIN [Concomitant]
  10. CIPROFLOXACIN [Concomitant]
  11. FENTANYL [Concomitant]
  12. VANCOMYCIN [Concomitant]

REACTIONS (23)
  - ACTIVATED PARTIAL THROMBOPLASTIN TIME PROLONGED [None]
  - BARRETT'S OESOPHAGUS [None]
  - BLOOD ALBUMIN DECREASED [None]
  - BLOOD AMYLASE INCREASED [None]
  - BLOOD FIBRINOGEN INCREASED [None]
  - COAGULOPATHY [None]
  - DEPRESSED LEVEL OF CONSCIOUSNESS [None]
  - DRUG INTERACTION POTENTIATION [None]
  - EMPYEMA [None]
  - FIBRIN D DIMER INCREASED [None]
  - HAEMATURIA [None]
  - HAEMOGLOBIN DECREASED [None]
  - HAEMORRHAGE [None]
  - HIATUS HERNIA [None]
  - INTERNATIONAL NORMALISED RATIO INCREASED [None]
  - METABOLIC ACIDOSIS [None]
  - PLEURISY [None]
  - PROTEINURIA [None]
  - PYROGLUTAMATE INCREASED [None]
  - PYURIA [None]
  - RENAL FAILURE [None]
  - SEPSIS [None]
  - VOMITING [None]
